FAERS Safety Report 9263671 (Version 7)
Quarter: 2023Q2

REPORT INFORMATION
  Report Type: Spontaneous
  Country: SE (occurrence: SE)
  Receive Date: 20130430
  Receipt Date: 20230424
  Transmission Date: 20230721
  Serious: Yes (Life-Threatening, Hospitalization, Other)
  Sender: FDA-Public Use
  Company Number: SE-PFIZER INC-2011265391

PATIENT
  Age: 42 Year
  Sex: Female

DRUGS (9)
  1. LYRICA [Suspect]
     Active Substance: PREGABALIN
     Indication: Nerve injury
     Dosage: 600 MILLIGRAM, QD, 225 MG MORNING, 375 MG EVENING
     Route: 048
     Dates: start: 2007
  2. LYRICA [Suspect]
     Active Substance: PREGABALIN
     Indication: Neuralgia
     Dosage: 150 MILLIGRAM, QD, (75 MG, 2X/DAY)
     Route: 065
  3. LYRICA [Suspect]
     Active Substance: PREGABALIN
     Dosage: 75 MILLIGRAM. UNK
     Route: 065
     Dates: start: 2007
  4. YASMIN [Suspect]
     Active Substance: DROSPIRENONE\ETHINYL ESTRADIOL
     Indication: Headache
     Dosage: 1 DOSAGE FORM, QD (1 DF, 1X/DAY) (15-SEP-2010)
     Route: 048
     Dates: start: 20100915, end: 20110223
  5. YASMIN [Suspect]
     Active Substance: DROSPIRENONE\ETHINYL ESTRADIOL
     Indication: Hormone level abnormal
  6. WARFARIN SODIUM [Suspect]
     Active Substance: WARFARIN SODIUM
     Indication: Pulmonary embolism
     Dosage: UNK
     Route: 048
     Dates: start: 20111018, end: 201302
  7. QUTENZA [Concomitant]
     Active Substance: CAPSAICIN
     Indication: Neuralgia
     Dosage: UNK (2012)
     Route: 062
     Dates: start: 2012
  8. QUTENZA [Concomitant]
     Active Substance: CAPSAICIN
     Indication: Hyperaesthesia
  9. SIMVASTATIN [Concomitant]
     Active Substance: SIMVASTATIN
     Indication: Product used for unknown indication
     Dosage: 20 MILLIGRAM, QD (20 MG, 1X/DAY)
     Route: 065
     Dates: start: 20130221

REACTIONS (15)
  - Pulmonary embolism [Recovered/Resolved]
  - Petit mal epilepsy [Not Recovered/Not Resolved]
  - Eye haemorrhage [Recovered/Resolved with Sequelae]
  - Deep vein thrombosis [Unknown]
  - Withdrawal syndrome [Recovering/Resolving]
  - Blunted affect [Recovering/Resolving]
  - Personality disorder [Not Recovered/Not Resolved]
  - Loss of consciousness [Not Recovered/Not Resolved]
  - Feeling abnormal [Not Recovered/Not Resolved]
  - Weight increased [Recovered/Resolved with Sequelae]
  - Dyspnoea [Unknown]
  - Pain in extremity [Unknown]
  - Memory impairment [Unknown]
  - Pain [Unknown]
  - Off label use [Unknown]

NARRATIVE: CASE EVENT DATE: 20070101
